FAERS Safety Report 5468221-7 (Version None)
Quarter: 2007Q3

REPORT INFORMATION
  Report Type: 
  Country: None (occurrence: None)
  Receive Date: 20070921
  Receipt Date: 20070912
  Transmission Date: 20080115
  Serious: Yes (Hospitalization, Other)
  Sender: FDA-Public Use
  Company Number: 17452

PATIENT
  Age: 45 Year
  Sex: Male
  Weight: 113 kg

DRUGS (14)
  1. ACYCLOVIR [Suspect]
     Indication: ENCEPHALITIS
     Dosage: 1500 MG TID IV
     Route: 042
  2. ACYCLOVIR [Suspect]
     Indication: HERPES SIMPLEX
     Dosage: 1500 MG TID IV
     Route: 042
  3. ACYCLOVIR [Suspect]
     Indication: ENCEPHALITIS
     Dosage: 1000 MG TID IV
     Route: 042
  4. ACYCLOVIR [Suspect]
     Indication: HERPES SIMPLEX
     Dosage: 1000 MG TID IV
     Route: 042
  5. ACYCLOVIR [Suspect]
     Indication: ENCEPHALITIS
     Dosage: 1000 MG OTH IV
     Route: 042
  6. ACYCLOVIR [Suspect]
     Indication: HERPES SIMPLEX
     Dosage: 1000 MG OTH IV
     Route: 042
  7. INSULIN [Concomitant]
  8. DOXYCYCLINE [Concomitant]
  9. PENICILLIN G [Concomitant]
  10. CEFADROXIL [Concomitant]
  11. DOXAZOSIN MESYLATE [Concomitant]
  12. ASPIRIN [Concomitant]
  13. PROPRANOLOL [Concomitant]
  14. GLYBURIDE [Concomitant]

REACTIONS (14)
  - AGITATION [None]
  - BLOOD CREATININE INCREASED [None]
  - DISORIENTATION [None]
  - DYSARTHRIA [None]
  - EXTENSOR PLANTAR RESPONSE [None]
  - MOVEMENT DISORDER [None]
  - MUSCLE SPASMS [None]
  - MUSCULAR WEAKNESS [None]
  - MYOCLONUS [None]
  - NYSTAGMUS [None]
  - OVERDOSE [None]
  - POLYURIA [None]
  - SOMNOLENCE [None]
  - VOMITING [None]
